FAERS Safety Report 13964456 (Version 1)
Quarter: 2017Q3

REPORT INFORMATION
  Report Type: Spontaneous
  Country: GB (occurrence: GB)
  Receive Date: 20170913
  Receipt Date: 20170913
  Transmission Date: 20171128
  Serious: Yes (Hospitalization, Other)
  Sender: FDA-Public Use
  Company Number: GB-APOTEX-2017AP017970

PATIENT
  Age: 15 Year
  Sex: Male

DRUGS (1)
  1. OLANZAPINE APOTEX [Suspect]
     Active Substance: OLANZAPINE
     Indication: PRODUCT USED FOR UNKNOWN INDICATION
     Dosage: UNK
     Route: 065

REACTIONS (9)
  - Intentional overdose [Unknown]
  - Sinus tachycardia [Recovered/Resolved]
  - Drug abuse [Unknown]
  - Electrocardiogram ST segment depression [Recovered/Resolved]
  - Miosis [Recovered/Resolved]
  - Dystonia [Recovered/Resolved]
  - Agitation [Recovered/Resolved]
  - Electrocardiogram T wave amplitude increased [Recovered/Resolved]
  - Depressed level of consciousness [Recovered/Resolved]
